FAERS Safety Report 4353854-1 (Version None)
Quarter: 2004Q2

REPORT INFORMATION
  Report Type: 
  Country: None (occurrence: None)
  Receive Date: 20040503
  Receipt Date: 20040420
  Transmission Date: 20050107
  Serious: Yes (Hospitalization)
  Sender: FDA-Public Use
  Company Number: BDI-006043

PATIENT
  Age: 47 Year
  Sex: Female

DRUGS (13)
  1. ISOVUE-370 [Suspect]
     Indication: ANGINA UNSTABLE
     Dosage: 86 ML ONCE IC
     Route: 016
     Dates: start: 20040305, end: 20040305
  2. ISOVUE-370 [Suspect]
     Indication: CATHETERISATION CARDIAC
     Dosage: 86 ML ONCE IC
     Route: 016
     Dates: start: 20040305, end: 20040305
  3. METOPROLOL [Concomitant]
  4. PARNATE [Concomitant]
  5. FLURAZEPAM [Concomitant]
  6. AMITRIPTYLINE HCL [Concomitant]
  7. TRAZODONE HCL [Concomitant]
  8. ASPIRIN [Concomitant]
  9. FIORINAL [Concomitant]
  10. ATIVAN [Concomitant]
  11. CLONAZEPAM [Concomitant]
  12. PLAVIX [Concomitant]
  13. ENOXAPARIN SODIUM [Concomitant]

REACTIONS (12)
  - AGITATION [None]
  - AMNESIA [None]
  - COGNITIVE DISORDER [None]
  - COMMUNICATION DISORDER [None]
  - DISORIENTATION [None]
  - DRUG INEFFECTIVE [None]
  - HALLUCINATION, VISUAL [None]
  - HALO VISION [None]
  - HEADACHE [None]
  - INCISION SITE HAEMORRHAGE [None]
  - MUTISM [None]
  - VISUAL DISTURBANCE [None]
